FAERS Safety Report 4777422-2 (Version None)
Quarter: 2005Q3

REPORT INFORMATION
  Report Type: 
  Country: None (occurrence: None)
  Receive Date: 20050921
  Receipt Date: 20050907
  Transmission Date: 20060218
  Serious: Yes (Hospitalization, Other)
  Sender: FDA-Public Use
  Company Number: USA0509107529

PATIENT
  Age: 84 Year
  Sex: Female

DRUGS (1)
  1. FORTEO [Suspect]
     Dates: start: 20050524, end: 20050501

REACTIONS (3)
  - PARATHYROID GLAND ENLARGEMENT [None]
  - PARATHYROID TUMOUR BENIGN [None]
  - PHARMACEUTICAL PRODUCT COMPLAINT [None]
